FAERS Safety Report 25903848 (Version 1)
Quarter: 2025Q4

REPORT INFORMATION
  Report Type: Report from Study
  Country: US (occurrence: US)
  Receive Date: 20251010
  Receipt Date: 20251010
  Transmission Date: 20260117
  Serious: Yes (Other)
  Sender: JOHNSON AND JOHNSON
  Company Number: US-JNJFOC-20251010971

PATIENT
  Age: 35 Year
  Sex: Female

DRUGS (5)
  1. ESKETAMINE [Suspect]
     Active Substance: ESKETAMINE
     Indication: Depression
     Dosage: ^56 MG, 8 TOTAL DOSES^
     Route: 045
     Dates: start: 20240430, end: 20240618
  2. ESKETAMINE [Suspect]
     Active Substance: ESKETAMINE
     Dosage: ^84 MG, 2 TOTAL DOSES^
     Route: 045
     Dates: start: 20240625, end: 20240702
  3. ESKETAMINE [Suspect]
     Active Substance: ESKETAMINE
     Dosage: ^56 MG, 1 TOTAL DOSE^
     Route: 045
     Dates: start: 20240716, end: 20240716
  4. ESKETAMINE [Suspect]
     Active Substance: ESKETAMINE
     Dosage: ^84 MG, 30 TOTAL DOSES^
     Route: 045
     Dates: start: 20240723, end: 20250919
  5. ESKETAMINE [Suspect]
     Active Substance: ESKETAMINE
     Dosage: ^84 MG, WITH MOST RECENT DOSE ADMINISTERED^
     Route: 045
     Dates: start: 20251007, end: 20251007

REACTIONS (1)
  - Sedation [Recovered/Resolved]

NARRATIVE: CASE EVENT DATE: 20251007
